FAERS Safety Report 18086585 (Version 2)
Quarter: 2021Q1

REPORT INFORMATION
  Report Type: Spontaneous
  Country: US (occurrence: US)
  Receive Date: 20200729
  Receipt Date: 20210324
  Transmission Date: 20210419
  Serious: Yes (Other)
  Sender: FDA-Public Use
  Company Number: US-GLAXOSMITHKLINE-US2020144689

PATIENT
  Sex: Male

DRUGS (9)
  1. ZANTAC [Suspect]
     Active Substance: RANITIDINE HYDROCHLORIDE
     Indication: DYSPEPSIA
     Dosage: 300 MG ,QD
     Route: 065
     Dates: start: 199901, end: 201801
  2. ZANTAC [Suspect]
     Active Substance: RANITIDINE HYDROCHLORIDE
     Indication: DYSPEPSIA
     Dosage: 300 MG ,QD
     Route: 065
     Dates: start: 199901, end: 201801
  3. ZANTAC [Suspect]
     Active Substance: RANITIDINE HYDROCHLORIDE
     Route: 065
     Dates: start: 20010115, end: 20180115
  4. RANITIDINE. [Suspect]
     Active Substance: RANITIDINE
     Dosage: 600 MG, QD
     Route: 065
     Dates: start: 199901, end: 201801
  5. RANITIDINE. [Suspect]
     Active Substance: RANITIDINE
     Dosage: 600 MG, QD
     Route: 065
     Dates: start: 199901, end: 201801
  6. RANITIDINE. [Suspect]
     Active Substance: RANITIDINE
     Indication: DYSPEPSIA
     Dosage: 300 MG,QD
     Route: 065
     Dates: start: 199901, end: 201801
  7. ZANTAC [Suspect]
     Active Substance: RANITIDINE HYDROCHLORIDE
     Dosage: 600 MG, QD
     Route: 065
     Dates: start: 199901, end: 201801
  8. ZANTAC [Suspect]
     Active Substance: RANITIDINE HYDROCHLORIDE
     Dosage: 600 MG , QD
     Route: 065
     Dates: start: 199901, end: 201801
  9. RANITIDINE. [Suspect]
     Active Substance: RANITIDINE
     Indication: DYSPEPSIA
     Dosage: 300 MG QD
     Route: 065
     Dates: start: 199901, end: 201801

REACTIONS (1)
  - Oesophageal carcinoma [Unknown]
